FAERS Safety Report 23726282 (Version 4)
Quarter: 2024Q2

REPORT INFORMATION
  Report Type: Spontaneous
  Country: JP (occurrence: None)
  Receive Date: 20240410
  Receipt Date: 20240620
  Transmission Date: 20240715
  Serious: Yes (Death, Hospitalization, Disabling, Other)
  Sender: FDA-Public Use
  Company Number: 2024A082477

PATIENT
  Age: 29681 Day
  Sex: Male
  Weight: 72 kg

DRUGS (20)
  1. ONDEXXYA [Suspect]
     Active Substance: ANDEXANET ALFA
     Dosage: DOSE UNKNOWN880.0MG UNKNOWN
     Route: 042
     Dates: start: 20240328, end: 20240328
  2. NEXIUM [Suspect]
     Active Substance: ESOMEPRAZOLE MAGNESIUM
     Indication: Haemorrhage
     Route: 048
  3. BISOPROLOL [Concomitant]
     Active Substance: BISOPROLOL\BISOPROLOL FUMARATE
     Indication: Atrial fibrillation
     Dosage: CRUSHED
     Route: 048
     Dates: start: 20240329
  4. FEBUXOSTAT [Concomitant]
     Active Substance: FEBUXOSTAT
     Dosage: CRUSHED
     Route: 048
     Dates: start: 20240329
  5. VASOLAN [Concomitant]
     Indication: Atrial fibrillation
     Dosage: CRUSHED
     Route: 048
     Dates: start: 20240329
  6. FENOFIBRATE [Concomitant]
     Active Substance: FENOFIBRATE
     Dosage: DOSE UNKNOWN UNKNOWN
  7. AZILSARTAN KAMEDOXOMIL [Concomitant]
     Active Substance: AZILSARTAN KAMEDOXOMIL
     Indication: Hypertension
     Dosage: CRUSHED
     Route: 048
     Dates: start: 20240329
  8. RABEPRAZOLE SODIUM [Concomitant]
     Active Substance: RABEPRAZOLE SODIUM
     Dosage: CRUSHED
     Route: 048
     Dates: start: 20240329, end: 20240330
  9. HEPARIN SODIUM [Concomitant]
     Active Substance: HEPARIN SODIUM
     Dosage: DOSE UNKNOWN
     Dates: start: 20240331, end: 20240331
  10. EDOXABAN TOSYLATE [Concomitant]
     Active Substance: EDOXABAN TOSYLATE
     Indication: Atrial fibrillation
     Route: 048
     Dates: start: 202403
  11. EDOXABAN TOSYLATE [Concomitant]
     Active Substance: EDOXABAN TOSYLATE
     Indication: Atrial fibrillation
     Route: 048
     Dates: start: 20240405
  12. NEXIUM [Concomitant]
     Active Substance: ESOMEPRAZOLE MAGNESIUM
     Dosage: DOSE UNKNOWN
     Route: 048
     Dates: start: 20240331
  13. TRICHLORMETHIAZIDE [Concomitant]
     Active Substance: TRICHLORMETHIAZIDE
     Indication: Hypertension
     Dosage: CRUSHED
     Route: 048
     Dates: start: 20240331
  14. CARBOCYSTEINE [Concomitant]
     Active Substance: CARBOCYSTEINE
     Route: 048
     Dates: start: 20240401
  15. AMBROXOL HYDROCHLORIDE [Concomitant]
     Active Substance: AMBROXOL HYDROCHLORIDE
     Route: 048
     Dates: start: 20240401
  16. LEVETIRACETAM [Concomitant]
     Active Substance: LEVETIRACETAM
     Route: 048
     Dates: start: 20240402
  17. DOXAZON [Concomitant]
     Indication: Hypertension
     Dosage: CRUSHED
     Route: 048
     Dates: start: 20240403
  18. ELOBIXIBAT [Concomitant]
     Active Substance: ELOBIXIBAT
     Dosage: CRUSHED
     Route: 048
     Dates: start: 20240403
  19. LACTULOSE [Concomitant]
     Active Substance: LACTULOSE
     Dosage: CRUSHED
     Route: 048
     Dates: start: 20240403
  20. POTASSIUM GLUCONATE [Concomitant]
     Active Substance: POTASSIUM GLUCONATE
     Dosage: CRUSHED
     Route: 048
     Dates: start: 20240404

REACTIONS (8)
  - Renal infarct [Recovering/Resolving]
  - Cerebral haematoma [Fatal]
  - Cerebral artery embolism [Recovering/Resolving]
  - Venous thrombosis limb [Recovering/Resolving]
  - Pneumonia aspiration [Fatal]
  - Paralysis [Unknown]
  - Dysphagia [Unknown]
  - Off label use [Unknown]

NARRATIVE: CASE EVENT DATE: 20240329
